FAERS Safety Report 4686560-4 (Version None)
Quarter: 2005Q2

REPORT INFORMATION
  Report Type: 
  Country: None (occurrence: None)
  Receive Date: 20050607
  Receipt Date: 20050525
  Transmission Date: 20051028
  Serious: Yes (Other)
  Sender: FDA-Public Use
  Company Number: 2005065082

PATIENT
  Sex: Male

DRUGS (3)
  1. BEXTRA [Suspect]
     Indication: ILL-DEFINED DISORDER
     Dosage: 20 MG (20 MG, 1 IN 1 D), UNKNOWN
  2. VICODIN [Suspect]
     Indication: ILL-DEFINED DISORDER
  3. ASPIRIN [Suspect]
     Indication: ILL-DEFINED DISORDER

REACTIONS (4)
  - ARTHROPATHY [None]
  - CHEST X-RAY ABNORMAL [None]
  - NEOPLASM [None]
  - NEOPLASM PROGRESSION [None]
